FAERS Safety Report 6314888-0 (Version None)
Quarter: 2009Q3

REPORT INFORMATION
  Report Type: 
  Country: None (occurrence: None)
  Receive Date: 20090819
  Receipt Date: 20090812
  Transmission Date: 20100115
  Serious: Yes (Hospitalization)
  Sender: FDA-Public Use
  Company Number: US-BAYER-200912959BCC

PATIENT
  Age: 70 Year
  Sex: Female
  Weight: 91 kg

DRUGS (7)
  1. ASPIRIN [Suspect]
     Indication: ISCHAEMIC HEART DISEASE PROPHYLAXIS
     Dosage: TOTAL DAILY DOSE: 325 MG  UNIT DOSE: 325 MG
     Route: 048
     Dates: start: 19980101, end: 20080101
  2. ASPIRIN [Concomitant]
     Route: 048
     Dates: start: 19980101, end: 20080101
  3. ANTIBIOTICS [Concomitant]
     Indication: SINUSITIS
     Route: 065
  4. AMLODIPINE [Concomitant]
     Dosage: TOTAL DAILY DOSE: 5 MG  UNIT DOSE: 5 MG
     Route: 048
  5. BENAZEPRIL HYDROCHLORIDE [Concomitant]
     Dosage: TOTAL DAILY DOSE: 20 MG  UNIT DOSE: 10 MG
     Route: 065
  6. METOPROLOL [Concomitant]
     Dosage: TOTAL DAILY DOSE: 100 MG  UNIT DOSE: 50 MG
     Route: 065
  7. BLOOD PRESSURE MEDICATIONS [Concomitant]
     Indication: BLOOD PRESSURE MANAGEMENT
     Route: 065

REACTIONS (2)
  - BLOOD PRESSURE INCREASED [None]
  - EPISTAXIS [None]
